FAERS Safety Report 8052422-8 (Version None)
Quarter: 2012Q1

REPORT INFORMATION
  Report Type: 
  Country: None (occurrence: None)
  Receive Date: 20120118
  Receipt Date: 20120112
  Transmission Date: 20120608
  Serious: Yes (Other)
  Sender: FDA-Public Use
  Company Number: BR-PFIZER INC-2012008038

PATIENT
  Age: 73 Year
  Sex: Female
  Weight: 50.8 kg

DRUGS (6)
  1. VARENICLINE TARTRATE [Suspect]
     Indication: SMOKING CESSATION THERAPY
     Dosage: ONE TABLET, ONCE DAILY
     Route: 048
  2. VARENICLINE TARTRATE [Suspect]
     Dosage: TREATMENT MAINTENANCE KIT
     Route: 048
     Dates: start: 20111226
  3. ISOSORBIDE MONONITRATE [Concomitant]
     Indication: CARDIAC DISORDER
     Dosage: 20 MG, 2X/DAY
     Dates: start: 20020101
  4. VARENICLINE TARTRATE [Suspect]
     Dosage: 1 MG, 2X/DAY
     Route: 048
  5. LEVOID [Concomitant]
     Indication: HYPOTHYROIDISM
     Dosage: 112 MG, 1X/DAY
     Dates: start: 20040101
  6. MODURETIC 5-50 [Concomitant]
     Indication: HYPERTENSION
     Dosage: 50 MG, 1X/DAY
     Dates: start: 19770101

REACTIONS (7)
  - DYSPEPSIA [None]
  - BLOOD GLUCOSE INCREASED [None]
  - HEADACHE [None]
  - ABDOMINAL DISCOMFORT [None]
  - NAUSEA [None]
  - ABDOMINAL PAIN UPPER [None]
  - VOMITING [None]
